FAERS Safety Report 7502461-8 (Version None)
Quarter: 2011Q2

REPORT INFORMATION
  Report Type: 
  Country: None (occurrence: None)
  Receive Date: 20110525
  Receipt Date: 20110513
  Transmission Date: 20111010
  Serious: Yes (Other)
  Sender: FDA-Public Use
  Company Number: IT-JNJFOC-20110506442

PATIENT
  Sex: Male

DRUGS (1)
  1. TOPAMAX [Suspect]
     Indication: EPILEPSY
     Route: 048

REACTIONS (6)
  - STEREOTYPY [None]
  - AGGRESSION [None]
  - SPEECH DISORDER [None]
  - UNEVALUABLE EVENT [None]
  - MOTOR DYSFUNCTION [None]
  - APHASIA [None]
